FAERS Safety Report 14182673 (Version 1)
Quarter: 2017Q4

REPORT INFORMATION
  Report Type: Report from Study
  Country: US (occurrence: US)
  Receive Date: 20171113
  Receipt Date: 20171113
  Transmission Date: 20180321
  Serious: Yes (Death, Hospitalization)
  Sender: FDA-Public Use
  Company Number: US-TAIHO ONCOLOGY INC-EU-2017-01299

PATIENT
  Age: 70 Year
  Sex: Female
  Weight: 76.27 kg

DRUGS (2)
  1. LONSURF [Suspect]
     Active Substance: TIPIRACIL HYDROCHLORIDE\TRIFLURIDINE
     Indication: COLON CANCER
     Route: 048
     Dates: start: 201705, end: 20171006
  2. METFORMIN [Concomitant]
     Active Substance: METFORMIN HYDROCHLORIDE
     Dosage: NI

REACTIONS (5)
  - Abdominal pain lower [Unknown]
  - Constipation [Unknown]
  - White blood cell count decreased [Recovered/Resolved]
  - Death [Fatal]
  - Inflammation [Unknown]

NARRATIVE: CASE EVENT DATE: 2017
